FAERS Safety Report 17941794 (Version 1)
Quarter: 2020Q2

REPORT INFORMATION
  Report Type: Spontaneous
  Country: NL (occurrence: NL)
  Receive Date: 20200624
  Receipt Date: 20200624
  Transmission Date: 20200714
  Serious: Yes (Other)
  Sender: FDA-Public Use
  Company Number: NL-UCBSA-2020024737

PATIENT
  Sex: Male

DRUGS (2)
  1. LEVETIRACETAM. [Suspect]
     Active Substance: LEVETIRACETAM
     Indication: EPILEPSY
     Dosage: 2 DF, QD
  2. LEVETIRACETAM. [Suspect]
     Active Substance: LEVETIRACETAM
     Dosage: 4 DF, QD (2X IN THE MORNING, 2X IN THE EVENING)

REACTIONS (5)
  - Inappropriate schedule of product administration [Unknown]
  - Hypertension [Unknown]
  - Epilepsy [Unknown]
  - Dyspnoea [Unknown]
  - Fatigue [Unknown]
